FAERS Safety Report 8037404-4 (Version None)
Quarter: 2011Q4

REPORT INFORMATION
  Report Type: 
  Country: None (occurrence: None)
  Receive Date: 20111202
  Receipt Date: 20111202
  Transmission Date: 20120403
  Serious: Yes (Hospitalization, Other)
  Sender: FDA-Public Use
  Company Number: 2009SP025221

PATIENT
  Age: 30 Year
  Sex: Female
  Weight: 113.3993 kg

DRUGS (4)
  1. NUVARING [Suspect]
     Indication: PRODUCT USED FOR UNKNOWN INDICATION
     Dates: start: 20070814, end: 20070920
  2. EXCEDRIN [Concomitant]
  3. EXTRA STRENGTH TYLENOL [Concomitant]
  4. CENTRUM [Concomitant]

REACTIONS (6)
  - PULMONARY EMBOLISM [None]
  - EXTRASYSTOLES [None]
  - THROMBOPHLEBITIS [None]
  - BRADYCARDIA [None]
  - HEADACHE [None]
  - PLEURITIC PAIN [None]
